FAERS Safety Report 8786963 (Version 1)
Quarter: 2012Q4

REPORT INFORMATION
  Report Type: 
  Country: US (occurrence: US)
  Receive Date: 20120914
  Receipt Date: 20120914
  Transmission Date: 20130627
  Serious: Yes (Other)
  Sender: FDA-Public Use
  Company Number: US-PFIZER INC-2012225924

PATIENT
  Age: 58 Year
  Sex: Female

DRUGS (12)
  1. NEURONTIN [Suspect]
     Dosage: 300 mg, UNK
  2. NEURONTIN [Suspect]
     Dosage: 600 mg, 3x/day (1)
     Route: 048
  3. PRAVASTATIN SODIUM [Concomitant]
     Dosage: 40 mg, UNK
  4. FLUOXETINE HYDROCHLORIDE [Concomitant]
     Dosage: 40 mg, UNK
  5. ENALAPRIL MALEATE [Concomitant]
     Dosage: 10 mg, UNK
  6. HYDROCHLOROTHIAZIDE [Concomitant]
     Dosage: 25 mg, UNK
  7. HUMALOG [Concomitant]
     Dosage: 100 unit/ml solution
  8. LANTUS [Concomitant]
     Dosage: 100 unit/ml solution
  9. AMOXICILLIN [Concomitant]
     Dosage: 875 mg, UNK
     Dates: start: 20120907
  10. DIFLUCAN [Concomitant]
     Dosage: 150 mg, UNK
     Dates: start: 20120907
  11. ASPIR-81 [Concomitant]
     Dosage: 81 mg, UNK
  12. PROVENTIL HFA 108 [Concomitant]
     Dosage: (90 base) mcg/act Aerosol solution

REACTIONS (4)
  - Type 2 diabetes mellitus [Unknown]
  - Essential hypertension [Unknown]
  - Hyperlipidaemia [Unknown]
  - Depression [Unknown]
